FAERS Safety Report 8048234-1 (Version None)
Quarter: 2011Q4

REPORT INFORMATION
  Report Type: 
  Country: None (occurrence: None)
  Receive Date: 20111209
  Receipt Date: 20111026
  Transmission Date: 20120403
  Serious: No
  Sender: FDA-Public Use
  Company Number: 2011SP050520

PATIENT
  Age: 51 Year
  Sex: Male
  Weight: 103.4201 kg

DRUGS (3)
  1. PEGASYS [Concomitant]
     Indication: PRODUCT USED FOR UNKNOWN INDICATION
     Dosage: 180 MCG;
  2. RIBAVIRIN [Suspect]
     Indication: PRODUCT USED FOR UNKNOWN INDICATION
  3. VICTRELIS [Suspect]
     Indication: PRODUCT USED FOR UNKNOWN INDICATION
     Dosage: 200 MG;TID
     Dates: start: 20111023

REACTIONS (5)
  - DIZZINESS [None]
  - DECREASED APPETITE [None]
  - DYSGEUSIA [None]
  - GINGIVAL PAIN [None]
  - DRUG DOSE OMISSION [None]
